FAERS Safety Report 5027139-4 (Version None)
Quarter: 2006Q2

REPORT INFORMATION
  Report Type: 
  Country: None (occurrence: None)
  Receive Date: 20060615
  Receipt Date: 20060515
  Transmission Date: 20061013
  Serious: Yes (Hospitalization)
  Sender: FDA-Public Use
  Company Number: FR-SANOFI-SYNTHELABO-A02200601327

PATIENT
  Sex: Female
  Weight: 58 kg

DRUGS (10)
  1. OROCAL [Concomitant]
     Indication: DRUG USE FOR UNKNOWN INDICATION
     Dosage: 500 MG
     Route: 048
  2. LAROXYL [Concomitant]
     Indication: DRUG USE FOR UNKNOWN INDICATION
     Dosage: 3 UNIT
     Route: 048
  3. ZOPHREN [Concomitant]
     Indication: DRUG USE FOR UNKNOWN INDICATION
     Dosage: UNK
     Route: 065
  4. GEMZAR [Concomitant]
     Indication: DRUG USE FOR UNKNOWN INDICATION
     Dosage: UNK
     Route: 042
  5. IMOVANE [Concomitant]
     Indication: DRUG USE FOR UNKNOWN INDICATION
     Dosage: 7.5 MG
     Route: 048
  6. ELOXATIN [Suspect]
     Indication: BILE DUCT CANCER
     Route: 042
     Dates: start: 20060511, end: 20060511
  7. VALIUM [Concomitant]
     Indication: DRUG USE FOR UNKNOWN INDICATION
     Dosage: 25 MG
     Route: 065
  8. FORLAX [Concomitant]
     Dosage: 2 UNIT
     Route: 048
  9. MOPRAL [Concomitant]
     Dosage: 1 UNIT
     Route: 048
  10. LEVOTHYROX [Concomitant]
     Dosage: 125 MCG
     Route: 048

REACTIONS (7)
  - ARTHRALGIA [None]
  - EAR PAIN [None]
  - ERYTHEMA [None]
  - MYALGIA [None]
  - PHARYNGOLARYNGEAL PAIN [None]
  - PRURITUS [None]
  - PYREXIA [None]
